FAERS Safety Report 11036652 (Version 1)
Quarter: 2015Q2

REPORT INFORMATION
  Report Type: Report from Study
  Country: MX (occurrence: MX)
  Receive Date: 20150416
  Receipt Date: 20150416
  Transmission Date: 20150821
  Serious: Yes (Hospitalization)
  Sender: FDA-Public Use
  Company Number: MX-ROCHE-1563927

PATIENT
  Sex: Male

DRUGS (1)
  1. BEVACIZUMAB [Suspect]
     Active Substance: BEVACIZUMAB
     Indication: KAPOSI^S SARCOMA AIDS RELATED
     Dosage: 0.2 ML (5 MG) PER CM2
     Route: 026

REACTIONS (1)
  - Mycobacterium avium complex infection [Unknown]
